FAERS Safety Report 7173382-8 (Version None)
Quarter: 2010Q4

REPORT INFORMATION
  Report Type: 
  Country: None (occurrence: None)
  Receive Date: 20101219
  Receipt Date: 20100226
  Transmission Date: 20110411
  Serious: No
  Sender: FDA-Public Use
  Company Number: US-AMGEN-KDL395628

PATIENT

DRUGS (19)
  1. ENBREL [Suspect]
     Indication: PRODUCT USED FOR UNKNOWN INDICATION
     Dosage: 50 MG, QWK
     Route: 058
  2. MONTELUKAST [Concomitant]
     Dosage: 10 MG, UNK
  3. LORAZEPAM [Concomitant]
     Dosage: .5 MG, UNK
  4. DESVENLAFAXINE [Concomitant]
     Dosage: 100 MG, UNK
  5. CELECOXIB [Concomitant]
     Dosage: 200 MG, UNK
  6. PREDNISONE [Concomitant]
     Dosage: 10 MG, UNK
  7. ZOLPIDEM [Concomitant]
     Dosage: 10 MG, UNK
  8. FLUTICASONE PROPIONATE [Concomitant]
     Dosage: 40 MG, UNK
  9. METHOTREXATE [Concomitant]
     Dosage: 2.5 MG, UNK
  10. CETIRIZINE HYDROCHLORIDE [Concomitant]
     Dosage: 10 MG, UNK
  11. FOLIC ACID [Concomitant]
     Dosage: 1 MG, UNK
  12. ESOMEPRAZOLE MAGNESIUM [Concomitant]
     Dosage: 20 MG, UNK
  13. CYCLOBENZAPRINE [Concomitant]
     Dosage: 5 MG, UNK
  14. UNSPECIFIED MEDICATION [Concomitant]
     Dosage: 500 MG, UNK
  15. SENNA [Concomitant]
     Dosage: 15 MG, UNK
  16. MIRALAX [Concomitant]
  17. ACETYLSALICYLIC ACID [Concomitant]
     Dosage: 81 MG, UNK
  18. BIOTIN [Concomitant]
     Dosage: UNK UNK, UNK
  19. COLECALCIFEROL [Concomitant]
     Dosage: UNK UNK, UNK

REACTIONS (1)
  - INJECTION SITE SWELLING [None]
